FAERS Safety Report 8531831-4 (Version None)
Quarter: 2012Q3

REPORT INFORMATION
  Report Type: 
  Country: None (occurrence: None)
  Receive Date: 20120723
  Receipt Date: 20120719
  Transmission Date: 20120928
  Serious: Yes (Hospitalization, Other)
  Sender: FDA-Public Use
  Company Number: US-PFIZER INC-2012137316

PATIENT
  Sex: Male

DRUGS (3)
  1. LATUDA [Concomitant]
     Dosage: UNK
  2. NEURONTIN [Suspect]
     Dosage: 600 MG, THREE TIMES PRN
  3. FANAPT [Concomitant]

REACTIONS (9)
  - ARTHRITIS [None]
  - TOOTH DISORDER [None]
  - CONVULSION [None]
  - ANXIETY [None]
  - PANIC DISORDER [None]
  - DEPRESSION [None]
  - PAIN [None]
  - BACK DISORDER [None]
  - VISUAL IMPAIRMENT [None]
